FAERS Safety Report 5063193-1 (Version None)
Quarter: 2006Q3

REPORT INFORMATION
  Report Type: 
  Country: None (occurrence: None)
  Receive Date: 20060703
  Receipt Date: 20051031
  Transmission Date: 20061208
  Serious: No
  Sender: FDA-Public Use
  Company Number: 2005S1010817

PATIENT
  Age: 47 Year
  Sex: Female

DRUGS (4)
  1. CLOZAPINE [Suspect]
     Indication: SCHIZOPHRENIA, PARANOID TYPE
     Dosage: 300 MG HS PO
     Route: 048
  2. LANSOPRAZOLE [Concomitant]
  3. FLUOXETINE HYUDROCHLORIDE [Concomitant]
  4. ESTROGENS CONJUGATED [Concomitant]

REACTIONS (1)
  - LEUKOPENIA [None]
